FAERS Safety Report 5922093-2 (Version None)
Quarter: 2008Q4

REPORT INFORMATION
  Report Type: 
  Country: None (occurrence: None)
  Receive Date: 20081017
  Receipt Date: 20081015
  Transmission Date: 20090506
  Serious: Yes (Other)
  Sender: FDA-Public Use
  Company Number: D0059026A

PATIENT
  Sex: Female

DRUGS (1)
  1. ELMENDOS [Suspect]
     Dosage: 12.5MG PER DAY
     Route: 048
     Dates: start: 20080101

REACTIONS (6)
  - BRADYCARDIA [None]
  - CONVULSION [None]
  - HYPONATRAEMIA [None]
  - LOSS OF CONSCIOUSNESS [None]
  - MUSCLE TWITCHING [None]
  - SYNCOPE [None]
